FAERS Safety Report 6368959-3 (Version None)
Quarter: 2009Q3

REPORT INFORMATION
  Report Type: 
  Country: None (occurrence: None)
  Receive Date: 20090918
  Receipt Date: 20090918
  Transmission Date: 20100115
  Serious: Yes (Disabling, Other)
  Sender: FDA-Public Use
  Company Number: None

PATIENT
  Age: 61 Year
  Sex: Female
  Weight: 74.3899 kg

DRUGS (1)
  1. LEVAQUIN [Suspect]
     Indication: POST PROCEDURAL INFECTION
     Dosage: 500 MG 1 DAILY FOR 7 DAYS
     Dates: start: 20090817, end: 20090823

REACTIONS (4)
  - ARTHRALGIA [None]
  - BURNING SENSATION [None]
  - JOINT CREPITATION [None]
  - TENDON PAIN [None]
